FAERS Safety Report 9470833 (Version 1)
Quarter: 2013Q3

REPORT INFORMATION
  Report Type: Spontaneous
  Country: US (occurrence: None)
  Receive Date: 20130820
  Receipt Date: 20130820
  Transmission Date: 20140515
  Serious: No
  Sender: FDA-Public Use
  Company Number: None

PATIENT
  Age: 59 None
  Sex: Female

DRUGS (4)
  1. CEFDINIR [Suspect]
     Indication: SINUSITIS
     Dosage: 300 MG 2 CAPSULES DAILY BY MOUTH
     Route: 048
     Dates: start: 20130730, end: 20130802
  2. LANSOPRAZOLE [Concomitant]
  3. CALTRATE [Concomitant]
  4. MULTIPLE VITAMIN [Concomitant]

REACTIONS (4)
  - Diarrhoea [None]
  - Nausea [None]
  - Abdominal pain [None]
  - Abdominal pain upper [None]
